FAERS Safety Report 12774726 (Version 2)
Quarter: 2016Q4

REPORT INFORMATION
  Report Type: Spontaneous
  Country: US (occurrence: US)
  Receive Date: 20160923
  Receipt Date: 20161005
  Transmission Date: 20170207
  Serious: No
  Sender: FDA-Public Use
  Company Number: US-BEH-2016073694

PATIENT
  Age: 52 Year
  Sex: Female

DRUGS (1)
  1. HIZENTRA [Suspect]
     Active Substance: HUMAN IMMUNOGLOBULIN G
     Indication: IMMUNODEFICIENCY
     Dosage: 9 G, QW
     Route: 058
     Dates: start: 20160508

REACTIONS (4)
  - Sneezing [Unknown]
  - Oropharyngeal pain [Unknown]
  - Ear pain [Unknown]
  - Cough [Unknown]

NARRATIVE: CASE EVENT DATE: 20160918
